FAERS Safety Report 8781766 (Version 2)
Quarter: 2012Q4

REPORT INFORMATION
  Report Type: 
  Country: US (occurrence: US)
  Receive Date: 20120913
  Receipt Date: 20121010
  Transmission Date: 20130627
  Serious: No
  Sender: FDA-Public Use
  Company Number: US-PFIZER INC-2012223978

PATIENT
  Age: 78 Year
  Sex: Female
  Weight: 88.4 kg

DRUGS (6)
  1. ARTHROTEC [Suspect]
     Indication: ARTHRITIS
     Dosage: 75/200 mg/mcg, 2x/day
     Route: 048
  2. SIMVASTATIN [Concomitant]
     Indication: BLOOD CHOLESTEROL INCREASED
     Dosage: UNK
  3. METFORMIN [Concomitant]
     Indication: DIABETES MELLITUS
     Dosage: UNK
  4. NITROFURANTOIN [Concomitant]
     Dosage: UNK
  5. VESICARE [Concomitant]
     Dosage: UNK
  6. ASPIRIN [Concomitant]
     Dosage: 81 mg, 1x/day

REACTIONS (3)
  - Arthritis [Unknown]
  - Osteoarthritis [Unknown]
  - Cardiac disorder [Unknown]
